FAERS Safety Report 4400563-6 (Version None)
Quarter: 2004Q3

REPORT INFORMATION
  Report Type: 
  Country: None (occurrence: None)
  Receive Date: 20040716
  Receipt Date: 20040716
  Transmission Date: 20050211
  Serious: No
  Sender: FDA-Public Use
  Company Number: None

PATIENT
  Age: 18 Year
  Sex: Female
  Weight: 49 kg

DRUGS (18)
  1. CAMPATH [Suspect]
     Indication: ACUTE LYMPHOCYTIC LEUKAEMIA
     Dosage: SEE IMAGE
     Route: 042
     Dates: start: 20040111, end: 20040111
  2. CAMPATH [Suspect]
     Indication: ACUTE LYMPHOCYTIC LEUKAEMIA
     Dosage: SEE IMAGE
     Route: 042
     Dates: start: 20040113, end: 20040115
  3. ACETAMINOPHEN [Concomitant]
  4. . [Concomitant]
  5. ALLOPURINOL [Concomitant]
  6. BENZTROPINE MESYLATE [Concomitant]
  7. DIPHENHYDRAMINE [Concomitant]
  8. FLUCONAZOLE [Concomitant]
  9. HYDROCORTISONE [Concomitant]
  10. NYSTATIN [Concomitant]
  11. PERI-COLACE [Concomitant]
  12. SERTRALINE HCL [Concomitant]
  13. CALCITRIOL [Concomitant]
  14. LANSOPRAZOLE [Concomitant]
  15. LEUCOVORIN CALCIUM [Concomitant]
  16. METHOTREXATE [Concomitant]
  17. CYCLOPHOSPHAMIDE [Concomitant]
  18. PREDNISONE [Concomitant]

REACTIONS (4)
  - HYPERHIDROSIS [None]
  - HYPOTENSION [None]
  - PYREXIA [None]
  - TACHYCARDIA [None]
